FAERS Safety Report 10451574 (Version 2)
Quarter: 2014Q3

REPORT INFORMATION
  Report Type: Spontaneous
  Country: KR (occurrence: KR)
  Receive Date: 20140914
  Receipt Date: 20140929
  Transmission Date: 20150326
  Serious: Yes (Hospitalization)
  Sender: FDA-Public Use
  Company Number: KR-009507513-1409KOR002154

PATIENT
  Age: 59 Year
  Sex: Male
  Weight: 75 kg

DRUGS (30)
  1. BRIDION [Suspect]
     Active Substance: SUGAMMADEX
     Indication: NEUROMUSCULAR BLOCKADE REVERSAL
     Dosage: 300 MG, ONCE, DOSE ALSO REPORTED AS 4MG/KG
     Route: 042
     Dates: start: 20140612, end: 201406
  2. ROCURONIUM BROMIDE. [Suspect]
     Active Substance: ROCURONIUM BROMIDE
     Dosage: 10 MG, ONCE
     Route: 042
     Dates: start: 20140612, end: 20140612
  3. ROCURONIUM BROMIDE. [Suspect]
     Active Substance: ROCURONIUM BROMIDE
     Dosage: 10 MG, ONCE
     Route: 042
     Dates: start: 20140612, end: 20140612
  4. LASIX [Concomitant]
     Active Substance: FUROSEMIDE
     Indication: DIURETIC THERAPY
     Dosage: 10 MG, ONCE
     Route: 042
     Dates: start: 20140612, end: 20140612
  5. ROCURONIUM BROMIDE. [Suspect]
     Active Substance: ROCURONIUM BROMIDE
     Dosage: 10 MG, ONCE
     Route: 042
     Dates: start: 20140612, end: 20140612
  6. ROCURONIUM BROMIDE. [Suspect]
     Active Substance: ROCURONIUM BROMIDE
     Dosage: 10 MG, ONCE
     Route: 042
     Dates: start: 20140612, end: 20140612
  7. GASTER [Concomitant]
     Active Substance: FAMOTIDINE
     Indication: PROPHYLAXIS
     Dosage: 20 MG, BID
     Route: 042
     Dates: start: 20140611, end: 20140618
  8. ROCURONIUM BROMIDE. [Suspect]
     Active Substance: ROCURONIUM BROMIDE
     Dosage: 10 MG, ONCE
     Route: 042
     Dates: start: 20140612, end: 20140612
  9. ROCURONIUM BROMIDE. [Suspect]
     Active Substance: ROCURONIUM BROMIDE
     Dosage: 10 MG, ONCE
     Route: 042
     Dates: start: 20140612, end: 20140612
  10. ROCURONIUM BROMIDE. [Suspect]
     Active Substance: ROCURONIUM BROMIDE
     Dosage: 10 MG, ONCE
     Route: 042
     Dates: start: 20140612, end: 20140612
  11. VIREAD [Concomitant]
     Active Substance: TENOFOVIR DISOPROXIL FUMARATE
     Indication: CHRONIC HEPATITIS B
     Dosage: 1 TABLET, QD
     Route: 048
     Dates: start: 20140605, end: 20140618
  12. DURICEF [Concomitant]
     Active Substance: CEFADROXIL
     Indication: INFECTION PROPHYLAXIS
     Dosage: 500 MG, BID
     Route: 048
     Dates: start: 20140610, end: 20140611
  13. PETHIDINE HCL FRESENIUS [Concomitant]
     Indication: PAIN PROPHYLAXIS
     Dosage: 25 MG, QD
     Route: 042
     Dates: start: 20140613, end: 20140613
  14. ROCURONIUM BROMIDE. [Suspect]
     Active Substance: ROCURONIUM BROMIDE
     Dosage: 10 MG, ONCE
     Route: 042
     Dates: start: 20140612, end: 20140612
  15. MUCOPECT [Concomitant]
     Indication: PROPHYLAXIS
     Dosage: 15 MG, QID
     Route: 042
     Dates: start: 20140612, end: 20140616
  16. ROCURONIUM BROMIDE. [Suspect]
     Active Substance: ROCURONIUM BROMIDE
     Indication: GENERAL ANAESTHESIA
     Dosage: 50MG, ONCE
     Route: 042
     Dates: start: 20140612, end: 20140612
  17. ROCURONIUM BROMIDE. [Suspect]
     Active Substance: ROCURONIUM BROMIDE
     Dosage: 10 MG, ONCE
     Route: 042
     Dates: start: 20140612, end: 20140612
  18. ROCURONIUM BROMIDE. [Suspect]
     Active Substance: ROCURONIUM BROMIDE
     Dosage: 10 MG, ONCE
     Route: 042
     Dates: start: 20140612, end: 20140612
  19. ROCURONIUM BROMIDE. [Suspect]
     Active Substance: ROCURONIUM BROMIDE
     Dosage: 10 MG, ONCE
     Route: 042
     Dates: start: 20140612, end: 20140612
  20. ROCURONIUM BROMIDE. [Suspect]
     Active Substance: ROCURONIUM BROMIDE
     Dosage: 10 MG, ONCE
     Route: 042
     Dates: start: 20140612
  21. ROCURONIUM BROMIDE. [Suspect]
     Active Substance: ROCURONIUM BROMIDE
     Dosage: UNK
  22. LASIX [Concomitant]
     Active Substance: FUROSEMIDE
     Dosage: 10 MG, ONCE
     Route: 042
     Dates: start: 20140612
  23. ROCURONIUM BROMIDE. [Suspect]
     Active Substance: ROCURONIUM BROMIDE
     Dosage: 10 MG, ONCE
     Route: 042
     Dates: start: 20140612, end: 20140612
  24. ROCURONIUM BROMIDE. [Suspect]
     Active Substance: ROCURONIUM BROMIDE
     Dosage: 10 MG, ONCE
     Route: 042
     Dates: start: 20140612, end: 20140612
  25. BISACODYL. [Concomitant]
     Active Substance: BISACODYL
     Indication: CONSTIPATION
     Dosage: 2 TABLET, ONCE
     Route: 048
     Dates: start: 20140611, end: 20140611
  26. YAMATETAN [Concomitant]
     Indication: INFECTION PROPHYLAXIS
     Dosage: 1 G, BID
     Route: 042
     Dates: start: 20140612, end: 20140615
  27. ROCURONIUM BROMIDE. [Suspect]
     Active Substance: ROCURONIUM BROMIDE
     Dosage: 10 MG, ONCE
     Route: 042
     Dates: start: 20140612, end: 20140612
  28. ROCURONIUM BROMIDE. [Suspect]
     Active Substance: ROCURONIUM BROMIDE
     Dosage: 10 MG, ONCE
     Route: 042
     Dates: start: 20140612, end: 20140612
  29. ROCURONIUM BROMIDE. [Suspect]
     Active Substance: ROCURONIUM BROMIDE
     Dosage: 10 MG, ONCE
     Route: 042
     Dates: start: 20140612, end: 20140612
  30. PHOSTEN [Concomitant]
     Indication: ELECTROLYTE SUBSTITUTION THERAPY
     Dosage: 1 AMPULE, QD
     Route: 042
     Dates: start: 20140613, end: 20140616

REACTIONS (1)
  - Chromaturia [Recovered/Resolved]

NARRATIVE: CASE EVENT DATE: 20140615
